FAERS Safety Report 5089610-9 (Version None)
Quarter: 2006Q3

REPORT INFORMATION
  Report Type: 
  Country: None (occurrence: None)
  Receive Date: 20060822
  Receipt Date: 20060811
  Transmission Date: 20061208
  Serious: Yes (Hospitalization)
  Sender: FDA-Public Use
  Company Number: US-2006-012201

PATIENT
  Age: 71 Year
  Sex: Male

DRUGS (11)
  1. LEUKINE [Suspect]
     Indication: CHRONIC LYMPHOCYTIC LEUKAEMIA
     Dosage: 250 UG, 3X/WEEK X 4 WEEKS, SUBCUTANEOUS
     Route: 058
     Dates: start: 20060101, end: 20060225
  2. RITUXIMAB (RITUXIMAB) [Suspect]
     Indication: CHRONIC LYMPHOCYTIC LEUKAEMIA
     Dosage: 350 MG/M2, 1X/WEEK X FOR 8 WEEKS, INTRAVENOUS
     Route: 042
     Dates: start: 20060101, end: 20060223
  3. LASIX [Concomitant]
  4. K-DUR 10 [Concomitant]
  5. ACCUPRIL [Suspect]
  6. ALLOPURINOL [Concomitant]
  7. SYNTHROID [Concomitant]
  8. DIGOXIN [Concomitant]
  9. ASPIRIN [Concomitant]
  10. MULTIPLE VITAMINS (RETINOL) [Concomitant]
  11. GINKGO BILOBA (GINKGO BILOBA) [Concomitant]

REACTIONS (2)
  - CEREBRAL ISCHAEMIA [None]
  - CEREBROVASCULAR ACCIDENT [None]
